FAERS Safety Report 11689319 (Version 1)
Quarter: 2015Q4

REPORT INFORMATION
  Report Type: Spontaneous
  Country: US (occurrence: US)
  Receive Date: 20151102
  Receipt Date: 20151102
  Transmission Date: 20160304
  Serious: No
  Sender: FDA-Public Use
  Company Number: US-009507513-1510USA013311

PATIENT
  Age: 61 Year
  Sex: Female

DRUGS (3)
  1. BELSOMRA [Suspect]
     Active Substance: SUVOREXANT
     Dosage: TOOK TWO 10 MG TABLETS
     Route: 048
     Dates: start: 20151025
  2. BELSOMRA [Suspect]
     Active Substance: SUVOREXANT
     Dosage: ONE 10MG PLUS HALF DOSE OF ANOTHER 10MG
     Route: 048
     Dates: start: 20151024, end: 20151024
  3. BELSOMRA [Suspect]
     Active Substance: SUVOREXANT
     Indication: INSOMNIA
     Dosage: 10 MG, QD
     Route: 048
     Dates: start: 20151023, end: 20151023

REACTIONS (3)
  - Poor quality sleep [Recovered/Resolved]
  - Wrong technique in product usage process [Unknown]
  - Drug effect delayed [Recovered/Resolved]

NARRATIVE: CASE EVENT DATE: 20151024
